FAERS Safety Report 5654133-2 (Version None)
Quarter: 2008Q1

REPORT INFORMATION
  Report Type: 
  Country: None (occurrence: None)
  Receive Date: 20080306
  Receipt Date: 20080303
  Transmission Date: 20080703
  Serious: Yes (Other)
  Sender: FDA-Public Use
  Company Number: IN-BOEHRINGER INGELHEIM GMBH, GERMANY-2008-BP-03152RO

PATIENT
  Age: 65 Year
  Sex: Female

DRUGS (2)
  1. ZOLPIDEM [Suspect]
     Indication: INSOMNIA
  2. RISPERIDONE [Concomitant]
     Indication: PSYCHOTIC DISORDER

REACTIONS (5)
  - DELIRIUM [None]
  - DISORIENTATION [None]
  - HALLUCINATION, AUDITORY [None]
  - HALLUCINATION, VISUAL [None]
  - LOGORRHOEA [None]
